FAERS Safety Report 8221319-2 (Version None)
Quarter: 2012Q1

REPORT INFORMATION
  Report Type: 
  Country: None (occurrence: None)
  Receive Date: 20120320
  Receipt Date: 20120315
  Transmission Date: 20120608
  Serious: Yes (Disabling)
  Sender: FDA-Public Use
  Company Number: PHHY2012IT023013

PATIENT
  Sex: Female

DRUGS (4)
  1. FEMARA [Concomitant]
     Dosage: 2.5 MG, UNK
     Route: 048
  2. ENOXAPARIN SODIUM [Concomitant]
     Dosage: 2000 IU, UNK
     Route: 042
  3. ZOMETA [Suspect]
     Indication: METASTASES TO BONE
     Dosage: 1 DF, QMO
     Dates: start: 20110504
  4. MEDROL [Concomitant]
     Dosage: 16 MG, UNK
     Route: 048

REACTIONS (2)
  - PAIN IN JAW [None]
  - SWELLING [None]
